FAERS Safety Report 19209885 (Version 1)
Quarter: 2021Q2

REPORT INFORMATION
  Report Type: Other
  Country: US (occurrence: US)
  Receive Date: 20210504
  Receipt Date: 20210504
  Transmission Date: 20210717
  Serious: Yes (Other)
  Sender: FDA-Public Use
  Company Number: US-ROCHE-2104429

PATIENT
  Age: 35 Year
  Sex: Female

DRUGS (3)
  1. OCREVUS [Suspect]
     Active Substance: OCRELIZUMAB
     Indication: RELAPSING MULTIPLE SCLEROSIS
     Dosage: DATE OF TREATMENT: 01/NOV/2017, 13/APR/2018, 01/DEC/2020
     Route: 042
     Dates: start: 20171017
  2. OCREVUS [Suspect]
     Active Substance: OCRELIZUMAB
     Dosage: SECOND SIX MONTH SPLIT OCRELIZUMAB DOSE
     Route: 042
     Dates: start: 20180413, end: 20180413
  3. OCREVUS [Suspect]
     Active Substance: OCRELIZUMAB
     Dosage: FIRST SIX MONTH SPLIT OCRELIZUMAB DOSE
     Route: 042
     Dates: start: 20180330, end: 20180330

REACTIONS (7)
  - Respiratory arrest [Recovered/Resolved]
  - Anxiety [Not Recovered/Not Resolved]
  - Dizziness [Recovering/Resolving]
  - Off label use [Unknown]
  - Drug hypersensitivity [Unknown]
  - Infusion related reaction [Not Recovered/Not Resolved]
  - Nausea [Recovering/Resolving]

NARRATIVE: CASE EVENT DATE: 20171017
